FAERS Safety Report 10067400 (Version 1)
Quarter: 2014Q2

REPORT INFORMATION
  Report Type: Spontaneous
  Country: US (occurrence: None)
  Receive Date: 20140408
  Receipt Date: 20140408
  Transmission Date: 20141212
  Serious: Yes (Other)
  Sender: FDA-Public Use
  Company Number: None

PATIENT
  Age: 81 Year
  Sex: Female

DRUGS (7)
  1. MARCAINE SPINAL [Suspect]
     Indication: ANAESTHESIA
     Dosage: 2 ML ONCE INTRATHECAL
     Route: 039
     Dates: start: 20140328
  2. MIDAZOLAM [Concomitant]
  3. FENTANYL [Concomitant]
  4. LIDOCAINE [Concomitant]
  5. PROPOFOL [Suspect]
  6. CEFAZOLIN [Concomitant]
  7. OFIRMEV [Concomitant]

REACTIONS (2)
  - Drug effect decreased [None]
  - Pain [None]
